FAERS Safety Report 20236319 (Version 1)
Quarter: 2021Q4

REPORT INFORMATION
  Report Type: Spontaneous
  Country: DE (occurrence: DE)
  Receive Date: 20211228
  Receipt Date: 20211228
  Transmission Date: 20220303
  Serious: Yes (Hospitalization)
  Sender: FDA-Public Use
  Company Number: DE-NOVARTISPH-NVSC2021DE290844

PATIENT
  Sex: Male
  Weight: 90 kg

DRUGS (2)
  1. KESIMPTA [Suspect]
     Active Substance: OFATUMUMAB
     Indication: Product used for unknown indication
     Dosage: UNK
     Route: 065
     Dates: start: 20211213
  2. KESIMPTA [Suspect]
     Active Substance: OFATUMUMAB
     Dosage: UNK
     Route: 065

REACTIONS (9)
  - Fall [Recovered/Resolved]
  - Syncope [Recovered/Resolved]
  - Dysstasia [Recovered/Resolved]
  - Body temperature increased [Recovered/Resolved]
  - Hypertension [Recovered/Resolved]
  - Influenza like illness [Recovered/Resolved]
  - Hemiparesis [Recovered/Resolved]
  - Urinary incontinence [Recovered/Resolved]
  - Paresis [Recovered/Resolved]

NARRATIVE: CASE EVENT DATE: 20211213
